FAERS Safety Report 24614910 (Version 2)
Quarter: 2024Q4

REPORT INFORMATION
  Report Type: Report from Study
  Country: US (occurrence: US)
  Receive Date: 20241113
  Receipt Date: 20241210
  Transmission Date: 20250114
  Serious: Yes (Hospitalization, Other)
  Sender: ALEXION PHARMACEUTICALS
  Company Number: US-AstraZeneca-CH-00741580A

PATIENT
  Age: 60 Year
  Weight: 84.009 kg

DRUGS (10)
  1. ACALABRUTINIB [Suspect]
     Active Substance: ACALABRUTINIB
     Indication: Chronic lymphocytic leukaemia
     Dosage: 100 MILLIGRAM, BID
  2. ACALABRUTINIB [Suspect]
     Active Substance: ACALABRUTINIB
     Dosage: 100 MILLIGRAM, BID
     Route: 048
  3. ACALABRUTINIB [Suspect]
     Active Substance: ACALABRUTINIB
     Dosage: 100 MILLIGRAM, BID
  4. ACALABRUTINIB [Suspect]
     Active Substance: ACALABRUTINIB
     Dosage: 100 MILLIGRAM, BID
     Route: 048
  5. ALLOPURINOL [Concomitant]
     Active Substance: ALLOPURINOL
     Route: 065
  6. ALLOPURINOL [Concomitant]
     Active Substance: ALLOPURINOL
     Route: 065
  7. IMODIUM [Concomitant]
     Active Substance: LOPERAMIDE HYDROCHLORIDE
     Route: 065
  8. IMODIUM [Concomitant]
     Active Substance: LOPERAMIDE HYDROCHLORIDE
     Route: 065
  9. MYLANTA [Concomitant]
     Active Substance: ALUMINUM HYDROXIDE\DIMETHICONE\MAGNESIUM HYDROXIDE
     Route: 065
  10. MYLANTA [Concomitant]
     Active Substance: ALUMINUM HYDROXIDE\DIMETHICONE\MAGNESIUM HYDROXIDE
     Route: 065

REACTIONS (2)
  - Ischaemic stroke [Not Recovered/Not Resolved]
  - Adenocarcinoma [Not Recovered/Not Resolved]
